FAERS Safety Report 8266268-9 (Version None)
Quarter: 2012Q2

REPORT INFORMATION
  Report Type: 
  Country: None (occurrence: None)
  Receive Date: 20120406
  Receipt Date: 20120330
  Transmission Date: 20120825
  Serious: Yes (Death)
  Sender: FDA-Public Use
  Company Number: KR-ABBOTT-10P-090-0660187-00

PATIENT
  Sex: Male
  Weight: 52 kg

DRUGS (17)
  1. SEPTRA [Concomitant]
     Route: 048
     Dates: start: 20100703, end: 20100717
  2. SEPTRA [Concomitant]
     Indication: PNEUMOCYSTIS JIROVECI PNEUMONIA
     Route: 048
     Dates: start: 20100612, end: 20100630
  3. PREDNISOLONE [Concomitant]
     Route: 048
     Dates: start: 20100616, end: 20100620
  4. PREDNISOLONE [Concomitant]
     Route: 048
     Dates: start: 20100621, end: 20100630
  5. PREDNISOLONE [Concomitant]
     Route: 048
     Dates: start: 20100703, end: 20100704
  6. PREDNISOLONE [Concomitant]
     Route: 048
     Dates: start: 20100705, end: 20100707
  7. CURAN [Concomitant]
     Indication: ANTACID THERAPY
     Route: 042
     Dates: start: 20100613, end: 20100613
  8. CURAN [Concomitant]
     Route: 042
     Dates: start: 20100709, end: 20100717
  9. CURAN [Concomitant]
     Route: 048
     Dates: start: 20100614, end: 20100702
  10. CURAN [Concomitant]
     Route: 048
     Dates: start: 20100704, end: 20100708
  11. 3TC/AZT [Concomitant]
     Indication: ANTIRETROVIRAL THERAPY
     Dates: start: 20100617, end: 20100706
  12. KALETRA [Suspect]
     Indication: HIV INFECTION
     Dates: start: 20100617, end: 20100706
  13. PREDNISOLONE [Concomitant]
     Indication: PNEUMOCYSTIS JIROVECI PNEUMONIA
     Route: 048
     Dates: start: 20100612, end: 20100615
  14. PREDNISOLONE [Concomitant]
     Route: 048
     Dates: start: 20100708, end: 20100717
  15. SEPTRA [Concomitant]
     Route: 048
     Dates: start: 20100701, end: 20100702
  16. PREDNISOLONE [Concomitant]
     Route: 048
     Dates: start: 20100701, end: 20100702
  17. ZOLPIDEM TARTRATE [Concomitant]
     Indication: INSOMNIA
     Route: 048
     Dates: start: 20100615, end: 20100622

REACTIONS (11)
  - TACHYCARDIA [None]
  - ISCHAEMIC CARDIOMYOPATHY [None]
  - PNEUMOCYSTIS JIROVECI PNEUMONIA [None]
  - ACUTE RESPIRATORY DISTRESS SYNDROME [None]
  - INAPPROPRIATE ANTIDIURETIC HORMONE SECRETION [None]
  - NAUSEA [None]
  - PANCYTOPENIA [None]
  - LIVER DISORDER [None]
  - ACQUIRED IMMUNODEFICIENCY SYNDROME [None]
  - PNEUMONIA CYTOMEGALOVIRAL [None]
  - BUNDLE BRANCH BLOCK [None]
